FAERS Safety Report 12313968 (Version 9)
Quarter: 2018Q3

REPORT INFORMATION
  Report Type: Spontaneous
  Country: IL (occurrence: IL)
  Receive Date: 20160428
  Receipt Date: 20180810
  Transmission Date: 20181010
  Serious: Yes (Hospitalization, Other)
  Sender: FDA-Public Use
  Company Number: IL-VERTEX PHARMACEUTICALS-2016-002606

PATIENT
  Sex: Female

DRUGS (3)
  1. ORKAMBI [Suspect]
     Active Substance: IVACAFTOR\LUMACAFTOR
     Dosage: 1 TAB PER DAY
     Route: 048
     Dates: start: 201710
  2. ORKAMBI [Suspect]
     Active Substance: IVACAFTOR\LUMACAFTOR
     Indication: CYSTIC FIBROSIS
     Dosage: UNK
     Route: 048
     Dates: end: 20160416
  3. ORKAMBI [Suspect]
     Active Substance: IVACAFTOR\LUMACAFTOR
     Dosage: 2 TABS PER DAY
     Route: 048
     Dates: start: 201712

REACTIONS (4)
  - General physical health deterioration [Recovering/Resolving]
  - Infective pulmonary exacerbation of cystic fibrosis [Recovered/Resolved]
  - Dyspnoea [Recovering/Resolving]
  - Pulmonary function test decreased [Recovering/Resolving]

NARRATIVE: CASE EVENT DATE: 2017
